FAERS Safety Report 8804462 (Version 1)
Quarter: 2012Q4

REPORT INFORMATION
  Report Type: 
  Country: FR (occurrence: FR)
  Receive Date: 20120924
  Receipt Date: 20120924
  Transmission Date: 20130627
  Serious: Yes (Other)
  Sender: FDA-Public Use
  Company Number: FR-B.I. PHARMACEUTICALS,INC./RIDGEFIELD-2012-FF-01264FF

PATIENT
  Age: 82 Year
  Sex: Female

DRUGS (1)
  1. ATROVENT [Suspect]
     Indication: RHINITIS
     Route: 045
     Dates: start: 20120801, end: 20120805

REACTIONS (8)
  - Urinary retention [Not Recovered/Not Resolved]
  - Nausea [Not Recovered/Not Resolved]
  - Vomiting [Not Recovered/Not Resolved]
  - Constipation [Not Recovered/Not Resolved]
  - Dry mouth [Not Recovered/Not Resolved]
  - Arrhythmia [Not Recovered/Not Resolved]
  - Glaucoma [Not Recovered/Not Resolved]
  - Visual acuity reduced [Not Recovered/Not Resolved]
